FAERS Safety Report 6607981-6 (Version None)
Quarter: 2010Q1

REPORT INFORMATION
  Report Type: 
  Country: None (occurrence: None)
  Receive Date: 20100301
  Receipt Date: 20100222
  Transmission Date: 20100710
  Serious: Yes (Death)
  Sender: FDA-Public Use
  Company Number: US-KINGPHARMUSA00001-K201000206

PATIENT
  Sex: Male
  Weight: 77 kg

DRUGS (4)
  1. THROMBIN NOS [Suspect]
     Indication: OPERATIVE HAEMORRHAGE
     Dosage: 40000 IU
     Route: 061
     Dates: start: 20100219, end: 20100219
  2. METOPROLOL TARTRATE [Concomitant]
     Dosage: UNK
  3. HYDROCHLOROTHIAZIDE [Concomitant]
     Dosage: UNK
  4. OMEPRAZOLE [Concomitant]
     Dosage: UNK

REACTIONS (4)
  - CIRCULATORY COLLAPSE [None]
  - COAGULOPATHY [None]
  - HYPERSENSITIVITY [None]
  - HYPOTENSION [None]
